FAERS Safety Report 5174220-5 (Version None)
Quarter: 2006Q4

REPORT INFORMATION
  Report Type: 
  Country: None (occurrence: None)
  Receive Date: 20061214
  Receipt Date: 20061205
  Transmission Date: 20070319
  Serious: Yes (Hospitalization)
  Sender: FDA-Public Use
  Company Number: US-JNJFOC-20061201588

PATIENT
  Sex: Female
  Weight: 69.85 kg

DRUGS (6)
  1. FENTANYL TRANSDERMAL SYSTEM [Suspect]
     Indication: PAIN IN EXTREMITY
     Route: 062
  2. FENTANYL TRANSDERMAL SYSTEM [Suspect]
     Indication: BACK PAIN
     Route: 062
  3. OXYCONTIN [Concomitant]
     Indication: PAIN
     Dosage: 1 EVERY 6-8 HOURS
     Route: 048
  4. NEURONTIN [Concomitant]
     Indication: PAIN
     Dosage: 1-3 TIMES A DAY
     Route: 048
  5. ASPIRIN [Concomitant]
     Indication: CARDIAC DISORDER
     Route: 048
  6. PREVACID [Concomitant]
     Indication: GASTROINTESTINAL DISORDER
     Route: 048

REACTIONS (1)
  - URINARY TRACT INFECTION [None]
